FAERS Safety Report 16197758 (Version 1)
Quarter: 2019Q2

REPORT INFORMATION
  Report Type: Report from Study
  Country: US (occurrence: US)
  Receive Date: 20190415
  Receipt Date: 20190415
  Transmission Date: 20190711
  Serious: Yes (Other)
  Sender: FDA-Public Use
  Company Number: US-QILU PHARMACEUTICAL CO.LTD.-QLU-000275-2019

PATIENT
  Age: 40 Year
  Sex: Female

DRUGS (15)
  1. IRINOTECAN-HYDROCHLORIDE [Suspect]
     Active Substance: IRINOTECAN HYDROCHLORIDE
     Dosage: 90 MG/M2, (LAST CYCLE)
     Route: 065
  2. 5-FLUROURACIL [Suspect]
     Active Substance: FLUOROURACIL
     Indication: ADENOCARCINOMA OF COLON
     Dosage: 2400 MG/M2, (CYCLE 1)
     Route: 065
  3. 5-FLUROURACIL [Suspect]
     Active Substance: FLUOROURACIL
     Dosage: 1600 MG/M2, (LAST CYCLE)
     Route: 065
  4. ZALTRAP [Suspect]
     Active Substance: ZIV-AFLIBERCEPT
     Dosage: 4 MG/KG, (LAST CYCLE; 2 YEARS LATER)
     Route: 065
  5. BEVACIZUMAB. [Suspect]
     Active Substance: BEVACIZUMAB
     Indication: ADENOCARCINOMA OF COLON
     Dosage: UNK
     Route: 065
  6. IRINOTECAN-HYDROCHLORIDE [Suspect]
     Active Substance: IRINOTECAN HYDROCHLORIDE
     Dosage: 110 MG/M2 (LAST CYCLE; 2 YEARS LATER)
     Route: 065
  7. IRINOTECAN-HYDROCHLORIDE [Suspect]
     Active Substance: IRINOTECAN HYDROCHLORIDE
     Indication: ADENOCARCINOMA OF COLON
     Dosage: 180 MG/M2 (CYCLE 1)
     Route: 065
  8. 5-FLUROURACIL [Suspect]
     Active Substance: FLUOROURACIL
     Dosage: 1600 MG/M2, (CYCLE 1; 2 YEARS LATER)
     Route: 065
  9. 5-FLUROURACIL [Suspect]
     Active Substance: FLUOROURACIL
     Dosage: 1600 MG/M2, (LAST CYCLE; 2 YEARS LATER)
     Route: 065
  10. ZALTRAP [Suspect]
     Active Substance: ZIV-AFLIBERCEPT
     Dosage: 4 MG/KG, (LAST CYCLE)
     Route: 065
  11. LEUCOVORIN. [Suspect]
     Active Substance: LEUCOVORIN
     Indication: ADENOCARCINOMA OF COLON
     Dosage: UNK
     Route: 065
  12. ZALTRAP [Suspect]
     Active Substance: ZIV-AFLIBERCEPT
     Indication: ADENOCARCINOMA OF COLON
     Dosage: 4 MG/KG, (CYCLE 1)
     Route: 065
  13. ZALTRAP [Suspect]
     Active Substance: ZIV-AFLIBERCEPT
     Dosage: 4 MG/KG, (CYCLE 1; 2 YEARS LATER)
     Route: 065
  14. LEUCOVORIN. [Suspect]
     Active Substance: LEUCOVORIN
     Dosage: UNK, AFTER 2 YEAR
  15. IRINOTECAN-HYDROCHLORIDE [Suspect]
     Active Substance: IRINOTECAN HYDROCHLORIDE
     Dosage: 110 MG/M2, (CYCLE 1; 2 YEARS LATER)
     Route: 065

REACTIONS (6)
  - Nausea [Unknown]
  - Ileus [Unknown]
  - Diarrhoea [Unknown]
  - Vomiting [Unknown]
  - Pulmonary embolism [Unknown]
  - Fistula [Unknown]
